FAERS Safety Report 11756599 (Version 1)
Quarter: 2015Q4

REPORT INFORMATION
  Report Type: Report from Study
  Country: US (occurrence: US)
  Receive Date: 20151120
  Receipt Date: 20151120
  Transmission Date: 20160304
  Serious: Yes (Other)
  Sender: FDA-Public Use
  Company Number: US-AMGEN-USASP2015120209

PATIENT
  Age: 73 Year
  Sex: Female

DRUGS (1)
  1. ENBREL [Suspect]
     Active Substance: ETANERCEPT
     Indication: RHEUMATOID ARTHRITIS
     Dosage: 50 MG, QWK
     Route: 065
     Dates: start: 20151020

REACTIONS (9)
  - Nasal congestion [Unknown]
  - Nasopharyngitis [Recovering/Resolving]
  - Uveitis [Unknown]
  - Oropharyngeal pain [Recovering/Resolving]
  - Secretion discharge [Recovering/Resolving]
  - Respiratory tract congestion [Recovering/Resolving]
  - Sinus disorder [Recovering/Resolving]
  - Cough [Recovering/Resolving]
  - Hypersensitivity [Unknown]

NARRATIVE: CASE EVENT DATE: 2015
